FAERS Safety Report 11313105 (Version 1)
Quarter: 2015Q3

REPORT INFORMATION
  Report Type: Spontaneous
  Country: US (occurrence: None)
  Receive Date: 20150724
  Receipt Date: 20150724
  Transmission Date: 20151125
  Serious: Yes (Disabling)
  Sender: FDA-Public Use
  Company Number: None

PATIENT
  Age: 27 Year
  Sex: Male
  Weight: 77.11 kg

DRUGS (3)
  1. TOPAMAX [Suspect]
     Active Substance: TOPIRAMATE
     Indication: EPILEPSY
     Dosage: 3 PILLS, TWICE DAILY
  2. PROTANDEM [Concomitant]
  3. CITRICAL +D [Concomitant]

REACTIONS (2)
  - Acidosis [None]
  - Osteoporosis [None]

NARRATIVE: CASE EVENT DATE: 20140412
